FAERS Safety Report 9555765 (Version 2)
Quarter: 2013Q3

REPORT INFORMATION
  Report Type: Report from Study
  Country: US (occurrence: US)
  Receive Date: 20130926
  Receipt Date: 20130930
  Transmission Date: 20140515
  Serious: No
  Sender: FDA-Public Use
  Company Number: US-JNJFOC-20130910667

PATIENT
  Age: 6 Year
  Sex: Female
  Weight: 17.5 kg

DRUGS (9)
  1. REMICADE [Suspect]
     Indication: INFLAMMATORY BOWEL DISEASE
     Route: 042
     Dates: start: 201209
  2. HYDROCORTISONE [Concomitant]
     Route: 065
  3. PREDNISONE [Concomitant]
     Route: 065
  4. METHOTREXATE [Concomitant]
     Route: 065
  5. PROBIOTICS [Concomitant]
     Route: 065
  6. VANCOMYCIN [Concomitant]
     Route: 065
  7. MULTIVITAMINS [Concomitant]
     Route: 065
  8. ZOFRAN [Concomitant]
     Route: 065
  9. VITAMIN D [Concomitant]
     Route: 065

REACTIONS (1)
  - Colitis [Recovered/Resolved]
